FAERS Safety Report 9146430 (Version 2)
Quarter: 2013Q1

REPORT INFORMATION
  Report Type: Report from Study
  Country: US (occurrence: US)
  Receive Date: 20130307
  Receipt Date: 20130313
  Transmission Date: 20140127
  Serious: Yes (Hospitalization)
  Sender: FDA-Public Use
  Company Number: US-ACTELION-A-NJ2013-80120

PATIENT
  Age: 57 Year
  Sex: Female

DRUGS (9)
  1. TRACLEER [Suspect]
     Indication: PULMONARY ARTERIAL HYPERTENSION
     Dosage: 125 MG, BID
     Route: 048
     Dates: start: 20091023
  2. ZOLPIDEM [Concomitant]
     Dosage: 12 MG, QD
     Route: 048
  3. METHOTREXATE [Concomitant]
     Dosage: 10 MG EVERY WEEK
     Route: 048
  4. REMICADE [Concomitant]
     Dosage: ONCE EVERY 5 WEEKS
     Route: 042
  5. SULFASALAZINE [Concomitant]
     Dosage: 500 MG, BID
     Route: 048
  6. LANSOPRAZOLE [Concomitant]
     Dosage: 30 MG, QD
     Route: 048
  7. OMEGA 3 [Concomitant]
     Dosage: 1000 MG, BID
  8. CALCIUM [Concomitant]
     Dosage: 500 MG, BID
     Route: 048
  9. TRIAMTERENE [Concomitant]
     Dosage: ONE TABLET ONCE DAILY
     Route: 048
     Dates: end: 201212

REACTIONS (8)
  - Rheumatoid arthritis [Recovered/Resolved]
  - Knee arthroplasty [Recovered/Resolved]
  - Pain in extremity [Not Recovered/Not Resolved]
  - Tendon rupture [Recovered/Resolved]
  - Heart rate irregular [Recovering/Resolving]
  - Vitamin D decreased [Recovered/Resolved]
  - Blood potassium decreased [Recovered/Resolved]
  - Oedema peripheral [Not Recovered/Not Resolved]
